FAERS Safety Report 17828314 (Version 1)
Quarter: 2020Q2

REPORT INFORMATION
  Report Type: Report from Study
  Country: US (occurrence: US)
  Receive Date: 20200527
  Receipt Date: 20200527
  Transmission Date: 20200714
  Serious: Yes (Hospitalization, Other)
  Sender: FDA-Public Use
  Company Number: US-GLAXOSMITHKLINE-US2020GSK088032

PATIENT
  Sex: Female
  Weight: 158 kg

DRUGS (1)
  1. ROLAPITANT HYDROCHLORIDE [Suspect]
     Active Substance: ROLAPITANT
     Indication: OVARIAN CANCER
     Dosage: 2 DF, Z (90 MG 1-2 HOURS)
     Route: 048
     Dates: start: 20200106

REACTIONS (1)
  - Nephrolithiasis [Unknown]
